FAERS Safety Report 21311984 (Version 4)
Quarter: 2022Q3

REPORT INFORMATION
  Report Type: Spontaneous
  Country: US (occurrence: US)
  Receive Date: 20220909
  Receipt Date: 20220923
  Transmission Date: 20221027
  Serious: Yes (Hospitalization)
  Sender: FDA-Public Use
  Company Number: US-PFIZER INC-202201135284

PATIENT
  Age: 61 Year
  Sex: Male
  Weight: 71.67 kg

DRUGS (3)
  1. PAXLOVID [Suspect]
     Active Substance: NIRMATRELVIR\RITONAVIR
     Indication: COVID-19 treatment
     Dosage: 20 MG
     Dates: start: 20220826
  2. PAXLOVID [Suspect]
     Active Substance: NIRMATRELVIR\RITONAVIR
     Dosage: [PF-07321332 300 MG]/[RITONAVIR 100 MG]; 2X/DAY
     Dates: start: 20220901
  3. MONTELUKAST [Suspect]
     Active Substance: MONTELUKAST SODIUM
     Indication: Dyspnoea
     Dosage: 10 MG

REACTIONS (27)
  - Nasal ulcer [Not Recovered/Not Resolved]
  - Incorrect dose administered [Unknown]
  - Electric shock sensation [Not Recovered/Not Resolved]
  - Photopsia [Recovered/Resolved]
  - Abnormal dreams [Not Recovered/Not Resolved]
  - Hyperhidrosis [Not Recovered/Not Resolved]
  - Feeling abnormal [Not Recovered/Not Resolved]
  - Feeling of body temperature change [Not Recovered/Not Resolved]
  - Dysgeusia [Recovered/Resolved]
  - Dark circles under eyes [Not Recovered/Not Resolved]
  - Skin discolouration [Not Recovered/Not Resolved]
  - Eye pruritus [Not Recovered/Not Resolved]
  - Eye irritation [Not Recovered/Not Resolved]
  - Periorbital oedema [Not Recovered/Not Resolved]
  - Asthenopia [Not Recovered/Not Resolved]
  - Productive cough [Recovered/Resolved]
  - Weight decreased [Not Recovered/Not Resolved]
  - Decreased appetite [Not Recovered/Not Resolved]
  - Taste disorder [Unknown]
  - Dyspnoea [Unknown]
  - Paraesthesia [Unknown]
  - Visual impairment [Unknown]
  - Vitreous floaters [Unknown]
  - Headache [Not Recovered/Not Resolved]
  - Bowel movement irregularity [Unknown]
  - Vision blurred [Unknown]
  - Pain [Unknown]

NARRATIVE: CASE EVENT DATE: 20220101
